FAERS Safety Report 10072274 (Version 1)
Quarter: 2014Q2

REPORT INFORMATION
  Report Type: Spontaneous
  Country: RU (occurrence: RU)
  Receive Date: 20140411
  Receipt Date: 20140411
  Transmission Date: 20141212
  Serious: Yes (Hospitalization)
  Sender: FDA-Public Use
  Company Number: RU-ASTRAZENECA-2014SE24215

PATIENT
  Age: 66 Year
  Sex: Female
  Weight: 95 kg

DRUGS (3)
  1. BRILINTA [Suspect]
     Indication: CARDIOVASCULAR EVENT PROPHYLAXIS
     Route: 048
     Dates: start: 20140105, end: 20140222
  2. CORAXAN [Concomitant]
     Route: 048
  3. DIURETICS [Concomitant]

REACTIONS (2)
  - Tachypnoea [Recovering/Resolving]
  - Cough [Recovered/Resolved]
